FAERS Safety Report 7417013-8 (Version None)
Quarter: 2011Q2

REPORT INFORMATION
  Report Type: 
  Country: None (occurrence: None)
  Receive Date: 20110412
  Receipt Date: 20110412
  Transmission Date: 20111010
  Serious: Yes (Life-Threatening, Hospitalization, Disabling, Other)
  Sender: FDA-Public Use
  Company Number: None

PATIENT
  Age: 82 Year
  Sex: Female
  Weight: 74.8435 kg

DRUGS (1)
  1. CLINDAMYCIN HCL [Suspect]
     Indication: STAPHYLOCOCCAL INFECTION
     Dosage: 1 CAPSULE EVERY 6 HRS
     Dates: start: 20110129, end: 20110203

REACTIONS (4)
  - HYPERSENSITIVITY [None]
  - WHITE BLOOD CELL COUNT INCREASED [None]
  - MUSCULAR WEAKNESS [None]
  - MALAISE [None]
